FAERS Safety Report 7309435-0 (Version None)
Quarter: 2011Q1

REPORT INFORMATION
  Report Type: 
  Country: None (occurrence: None)
  Receive Date: 20110223
  Receipt Date: 20110208
  Transmission Date: 20110831
  Serious: Yes (Other)
  Sender: FDA-Public Use
  Company Number: RU-GENENTECH-313783

PATIENT
  Age: 59 Year
  Sex: Male

DRUGS (1)
  1. MABTHERA [Suspect]
     Indication: B-CELL LYMPHOMA
     Dosage: 1000 MG, 1/WEEK
     Route: 042

REACTIONS (2)
  - CLONIC CONVULSION [None]
  - LOSS OF CONSCIOUSNESS [None]
